FAERS Safety Report 19694052 (Version 1)
Quarter: 2021Q3

REPORT INFORMATION
  Report Type: Spontaneous
  Country: NL (occurrence: NL)
  Receive Date: 20210813
  Receipt Date: 20210813
  Transmission Date: 20211014
  Serious: Yes (Hospitalization)
  Sender: FDA-Public Use
  Company Number: NL-TEVA-2021-NL-1940844

PATIENT
  Age: 62 Year
  Sex: Female

DRUGS (9)
  1. PARACETAMOL TABLET  500MG / BRAND NAME NOT SPECIFIED [Concomitant]
     Dosage: THERAPY START DATE ASKU, THERAPY END DATE ASKU
  2. OXYCODON CAPSULE  5MG / BRAND NAME NOT SPECIFIED [Concomitant]
     Active Substance: OXYCODONE
     Dosage: THERAPY START DATE ASKU, THERAPY END DATE ASKU
  3. MACROGOL/ZOUTEN PDR V DRANK (MOVIC/MOLAX/LAXT/GEN) / BRAND NAME NOT SP [Concomitant]
     Dosage: THERAPY START DATE ASKU, THERAPY END DATE ASKU
  4. LISINOPRIL/HYDROCHLOORTHIAZIDE TABLET 20/12,5MG / BRAND NAME NOT SPECI [Concomitant]
     Dosage: 1DD1, 1DF, THERAPY START DATE ASKU, THERAPY END DATE ASKU
  5. OXYCODON TABLET MGA   5MG / BRAND NAME NOT SPECIFIED [Concomitant]
     Active Substance: OXYCODONE
     Dosage: THERAPY START DATE ASKU, THERAPY END DATE ASKU
  6. AMLODIPINE TABLET   5MG / BRAND NAME NOT SPECIFIED [Concomitant]
     Active Substance: AMLODIPINE BESYLATE
     Dosage: THERAPY START DATE ASKU, THERAPY END DATE ASKU
  7. SIMVASTATINE TABLET FO 20MG / BRAND NAME NOT SPECIFIED [Concomitant]
     Active Substance: SIMVASTATIN
     Dosage: THERAPY START DATE ASKU, THERAPY END DATE ASKU
  8. DICLOFENAC?NATRIUM TABLET MSR 50MG / BRAND NAME NOT SPECIFIED [Suspect]
     Active Substance: DICLOFENAC SODIUM
     Indication: PAIN
     Dosage: 150 MILLIGRAM DAILY;
     Route: 065
     Dates: start: 20210724, end: 20210726
  9. NADROPARINE INJVLST  9500IE/ML / BRAND NAME NOT SPECIFIED [Concomitant]
     Dosage: THERAPY START DATE ASKU, THERAPY END DATE ASKU

REACTIONS (2)
  - Dizziness [Recovered/Resolved]
  - Blood pressure decreased [Unknown]

NARRATIVE: CASE EVENT DATE: 20210724
